FAERS Safety Report 18714565 (Version 5)
Quarter: 2021Q2

REPORT INFORMATION
  Report Type: Report from Study
  Country: BR (occurrence: BR)
  Receive Date: 20210108
  Receipt Date: 20210601
  Transmission Date: 20210717
  Serious: Yes (Hospitalization, Other)
  Sender: FDA-Public Use
  Company Number: BR-BRISTOL-MYERS SQUIBB COMPANY-BMS-2021-000003

PATIENT
  Age: 70 Year
  Sex: Male
  Weight: 78 kg

DRUGS (14)
  1. TRAZODONE [Concomitant]
     Active Substance: TRAZODONE HYDROCHLORIDE
     Indication: PRODUCT USED FOR UNKNOWN INDICATION
     Dosage: 50 MILLIGRAM
     Route: 048
     Dates: start: 20201122, end: 20210213
  2. LACTULOSE. [Concomitant]
     Active Substance: LACTULOSE
     Indication: HEPATIC ENCEPHALOPATHY
     Dosage: 1 DOSAGE FORM= 60 UNITS NOT SPECIFIED
     Route: 048
     Dates: start: 20201117, end: 20210221
  3. PREDNISONE. [Concomitant]
     Active Substance: PREDNISONE
     Indication: PRODUCT USED FOR UNKNOWN INDICATION
     Dosage: 80 MILLIGRAM
     Route: 048
     Dates: start: 20201212, end: 20201230
  4. METHYLPREDNISOLONE. [Concomitant]
     Active Substance: METHYLPREDNISOLONE
     Indication: HEPATIC ENCEPHALOPATHY
     Dosage: 80 MILLIGRAM
     Route: 042
     Dates: start: 20201231, end: 20210103
  5. LACOSAMIDE. [Concomitant]
     Active Substance: LACOSAMIDE
     Indication: HEPATIC ENCEPHALOPATHY
     Dosage: 400 MILLIGRAM
     Route: 048
     Dates: start: 20201207
  6. INDAPAMIDE. [Concomitant]
     Active Substance: INDAPAMIDE
     Indication: PRODUCT USED FOR UNKNOWN INDICATION
     Dosage: 2.5 MILLIGRAM
     Route: 048
     Dates: start: 2011
  7. LEVOFLOXACIN. [Concomitant]
     Active Substance: LEVOFLOXACIN
     Indication: PRODUCT USED FOR UNKNOWN INDICATION
     Dosage: 750 MILLIGRAM
     Route: 048
     Dates: start: 20201230, end: 20201231
  8. METRONIDAZOLE. [Concomitant]
     Active Substance: METRONIDAZOLE
     Indication: PRODUCT USED FOR UNKNOWN INDICATION
     Dosage: 400 MILLIGRAM
     Route: 048
     Dates: start: 20201231, end: 20210110
  9. NIVOLUMAB [Suspect]
     Active Substance: NIVOLUMAB
     Indication: HEPATOCELLULAR CARCINOMA
     Dosage: 79 MILLIGRAM
     Route: 042
     Dates: start: 20200922
  10. PREDNISONE. [Concomitant]
     Active Substance: PREDNISONE
     Dosage: 40 MILLIGRAM
     Route: 048
     Dates: start: 20201231, end: 20201231
  11. CLOBAZAM. [Concomitant]
     Active Substance: CLOBAZAM
     Indication: HEPATIC ENCEPHALOPATHY
     Dosage: 10 MILLIGRAM
     Route: 048
     Dates: start: 20201118, end: 20201231
  12. ATENOLOL. [Concomitant]
     Active Substance: ATENOLOL
     Indication: PRODUCT USED FOR UNKNOWN INDICATION
     Dosage: 50 MILLIGRAM
     Route: 048
     Dates: start: 2011
  13. IPILIMUMAB [Suspect]
     Active Substance: IPILIMUMAB
     Indication: HEPATOCELLULAR CARCINOMA
     Dosage: 236 MILLIGRAM
     Route: 042
     Dates: start: 20200922
  14. LACTULOSE. [Concomitant]
     Active Substance: LACTULOSE
     Dosage: 1 DOSAGE FORM= 80 UNITS NOT SPECIFIED
     Route: 048
     Dates: start: 20201208

REACTIONS (1)
  - Pulmonary sepsis [Recovered/Resolved]

NARRATIVE: CASE EVENT DATE: 20201231
